FAERS Safety Report 8196373-7 (Version None)
Quarter: 2012Q1

REPORT INFORMATION
  Report Type: 
  Country: None (occurrence: None)
  Receive Date: 20120309
  Receipt Date: 20120305
  Transmission Date: 20120608
  Serious: No
  Sender: FDA-Public Use
  Company Number: US-PFIZER INC-2012059743

PATIENT

DRUGS (1)
  1. EFFEXOR [Suspect]
     Dosage: UNK

REACTIONS (7)
  - FEELING COLD [None]
  - NERVOUSNESS [None]
  - VERTIGO [None]
  - CRYING [None]
  - WITHDRAWAL SYNDROME [None]
  - FEELING HOT [None]
  - NAUSEA [None]
